FAERS Safety Report 4689615-3 (Version None)
Quarter: 2005Q2

REPORT INFORMATION
  Report Type: 
  Country: None (occurrence: None)
  Receive Date: 20050608
  Receipt Date: 20050131
  Transmission Date: 20051028
  Serious: No
  Sender: FDA-Public Use
  Company Number: 2005-BP-01486BP

PATIENT
  Age: 57 Year
  Sex: Male

DRUGS (9)
  1. SPIRIVA [Suspect]
     Indication: CHRONIC OBSTRUCTIVE PULMONARY DISEASE
     Dosage: 18 MCG (18 MCG), IH
     Route: 055
     Dates: start: 20041001
  2. SEREVENT [Concomitant]
  3. SINGULAIR (MONTELUKAST) [Concomitant]
  4. PROVIGIL [Concomitant]
  5. STRATERA [Concomitant]
  6. GLUCOPHAGE [Concomitant]
  7. ACTOSE [Concomitant]
  8. LISINOPRIL [Concomitant]
  9. CARBAMAZEPINE [Suspect]
     Indication: PAIN MANAGEMENT
     Dosage: 200 MG (NR), PO
     Route: 048

REACTIONS (3)
  - MUSCLE SPASMS [None]
  - MUSCULAR WEAKNESS [None]
  - STOMACH DISCOMFORT [None]
